FAERS Safety Report 10385095 (Version 1)
Quarter: 2014Q3

REPORT INFORMATION
  Report Type: Spontaneous
  Country: DK (occurrence: DK)
  Receive Date: 20140814
  Receipt Date: 20140814
  Transmission Date: 20150326
  Serious: Yes (Other)
  Sender: FDA-Public Use
  Company Number: DK-TEVA-499694ISR

PATIENT
  Sex: Male

DRUGS (3)
  1. AMITRIPTYLIN [Suspect]
     Active Substance: AMITRIPTYLINE
     Indication: NEUROLOGICAL INFECTION
     Dosage: 10 MILLIGRAM DAILY;
     Route: 048
     Dates: start: 20110506, end: 20110802
  2. GABAPENTIN. [Suspect]
     Active Substance: GABAPENTIN
     Dosage: 900 MILLIGRAM DAILY;
     Route: 048
     Dates: start: 20110513, end: 201109
  3. GABAPENTIN. [Suspect]
     Active Substance: GABAPENTIN
     Indication: ARTHRALGIA
     Dosage: 600 MILLIGRAM DAILY; THE STARTING DOSE 300MG X 2 DAILY
     Route: 048

REACTIONS (7)
  - Dysgeusia [Unknown]
  - Cataract operation [Recovered/Resolved]
  - Cataract [Recovered/Resolved]
  - Retinal depigmentation [Not Recovered/Not Resolved]
  - Blindness [Not Recovered/Not Resolved]
  - Parosmia [Unknown]
  - Weight increased [Unknown]

NARRATIVE: CASE EVENT DATE: 2011
